FAERS Safety Report 9089454 (Version 1)
Quarter: 2013Q1

REPORT INFORMATION
  Report Type: Spontaneous
  Country: JP (occurrence: JP)
  Receive Date: 20130201
  Receipt Date: 20130201
  Transmission Date: 20140127
  Serious: Yes (Other)
  Sender: FDA-Public Use
  Company Number: PHHY2013JP009342

PATIENT
  Age: 70 Year
  Sex: Male

DRUGS (4)
  1. TASIGNA [Suspect]
     Indication: CHRONIC MYELOID LEUKAEMIA
     Dosage: 300 MG, DAILY
     Route: 048
     Dates: start: 20120822
  2. NORVASC [Concomitant]
     Route: 048
  3. TENORMIN [Concomitant]
     Route: 048
  4. BUFFERIN                           /00009201/ [Concomitant]
     Dosage: 330 MG,
     Route: 048

REACTIONS (6)
  - Aortitis [Not Recovered/Not Resolved]
  - Retroperitoneal fibrosis [Not Recovered/Not Resolved]
  - Abdominal mass [Not Recovered/Not Resolved]
  - Metastasis [Not Recovered/Not Resolved]
  - C-reactive protein increased [Not Recovered/Not Resolved]
  - Weight decreased [Not Recovered/Not Resolved]
